FAERS Safety Report 4767328-7 (Version None)
Quarter: 2005Q3

REPORT INFORMATION
  Report Type: 
  Country: None (occurrence: None)
  Receive Date: 20050913
  Receipt Date: 20050906
  Transmission Date: 20060218
  Serious: Yes (Death, Hospitalization)
  Sender: FDA-Public Use
  Company Number: SE-GLAXOSMITHKLINE-B0393632A

PATIENT
  Age: 82 Year
  Sex: Male

DRUGS (2)
  1. ZOVIRAX [Suspect]
     Indication: HERPES ZOSTER
     Route: 057
     Dates: start: 19911227, end: 19920108
  2. ZOVIRAX [Suspect]
     Dosage: 600MG TWICE PER DAY
     Route: 048
     Dates: start: 19911230, end: 19920108

REACTIONS (12)
  - ABDOMINAL PAIN [None]
  - ASTHENIA [None]
  - CHEST PAIN [None]
  - CONFUSIONAL STATE [None]
  - COUGH [None]
  - DEATH [None]
  - DIZZINESS [None]
  - FATIGUE [None]
  - GENERAL PHYSICAL HEALTH DETERIORATION [None]
  - HALLUCINATION [None]
  - HYPOTONIA [None]
  - MOBILITY DECREASED [None]
